FAERS Safety Report 8813395 (Version 1)
Quarter: 2012Q4

REPORT INFORMATION
  Report Type: 
  Country: AR (occurrence: AR)
  Receive Date: 20120927
  Receipt Date: 20120927
  Transmission Date: 20130627
  Serious: Yes (Other)
  Sender: FDA-Public Use
  Company Number: AR-B.I. PHARMACEUTICALS,INC./RIDGEFIELD-2012-RA-00263RA

PATIENT
  Age: 51 Year
  Sex: Male
  Weight: 107 kg

DRUGS (1)
  1. MICARDIS [Suspect]
     Indication: HYPERTENSION
     Dosage: 40 mg
     Route: 048
     Dates: start: 20120811

REACTIONS (5)
  - Hyperglycaemia [Recovered/Resolved]
  - Rash [Recovered/Resolved]
  - Thirst [Recovered/Resolved]
  - Visual impairment [Not Recovered/Not Resolved]
  - Balanitis [Not Recovered/Not Resolved]
